FAERS Safety Report 15956734 (Version 2)
Quarter: 2019Q1

REPORT INFORMATION
  Report Type: Spontaneous
  Country: US (occurrence: US)
  Receive Date: 20190213
  Receipt Date: 20190325
  Transmission Date: 20190417
  Serious: No
  Sender: FDA-Public Use
  Company Number: US-SHIRE-US201904678

PATIENT
  Age: 77 Year
  Sex: Female
  Weight: 68.93 kg

DRUGS (1)
  1. XIIDRA [Suspect]
     Active Substance: LIFITEGRAST
     Indication: DRY EYE
     Dosage: 1 GTT DROPS, 2X/DAY:BID
     Route: 047
     Dates: start: 201902, end: 201902

REACTIONS (8)
  - Instillation site pain [Recovered/Resolved]
  - Vision blurred [Recovered/Resolved]
  - Depressed mood [Recovered/Resolved]
  - Sinus congestion [Recovered/Resolved]
  - Instillation site lacrimation [Recovered/Resolved]
  - Rhinalgia [Recovered/Resolved]
  - Instillation site reaction [Recovered/Resolved]
  - Facial pain [Recovered/Resolved]

NARRATIVE: CASE EVENT DATE: 201902
